FAERS Safety Report 6244619-4 (Version None)
Quarter: 2009Q2

REPORT INFORMATION
  Report Type: 
  Country: None (occurrence: None)
  Receive Date: 20090625
  Receipt Date: 20090618
  Transmission Date: 20091009
  Serious: Yes (Other)
  Sender: FDA-Public Use
  Company Number: US-PFIZER INC-2006057451

PATIENT
  Sex: Female
  Weight: 72 kg

DRUGS (5)
  1. PROVERA [Suspect]
     Indication: HORMONE REPLACEMENT THERAPY
     Route: 048
     Dates: start: 19920501, end: 19980601
  2. PREMARIN [Suspect]
     Indication: HORMONE REPLACEMENT THERAPY
     Route: 065
     Dates: start: 19920501, end: 19980601
  3. PREMARIN [Suspect]
     Route: 065
     Dates: start: 20000901, end: 20021001
  4. PREMARIN [Suspect]
     Route: 065
     Dates: start: 20021001, end: 20040501
  5. PREMPRO [Suspect]
     Indication: HORMONE REPLACEMENT THERAPY
     Route: 065
     Dates: start: 19980601, end: 20000901

REACTIONS (1)
  - BREAST CANCER [None]
